FAERS Safety Report 5430780-8 (Version None)
Quarter: 2007Q3

REPORT INFORMATION
  Report Type: 
  Country: None (occurrence: None)
  Receive Date: 20070830
  Receipt Date: 20061120
  Transmission Date: 20080115
  Serious: No
  Sender: FDA-Public Use
  Company Number: A0628118A

PATIENT
  Age: 38 Year
  Sex: Female

DRUGS (5)
  1. WELLBUTRIN XL [Suspect]
     Indication: DEPRESSION
     Dosage: 300MG PER DAY
     Route: 048
     Dates: start: 20050101
  2. LISINOPRIL [Concomitant]
  3. VALIUM [Concomitant]
  4. SYNTHROID [Concomitant]
  5. MECLIZINE [Concomitant]

REACTIONS (3)
  - BLOOD PRESSURE INCREASED [None]
  - DRY MOUTH [None]
  - LIBIDO DECREASED [None]
